FAERS Safety Report 25147933 (Version 1)
Quarter: 2025Q2

REPORT INFORMATION
  Report Type: Spontaneous
  Country: US (occurrence: US)
  Receive Date: 20250402
  Receipt Date: 20250402
  Transmission Date: 20250716
  Serious: Yes (Other)
  Sender: CSL BEHRING
  Company Number: US-BEH-2025200678

PATIENT
  Age: 77 Year
  Sex: Female
  Weight: 78.005 kg

DRUGS (2)
  1. HIZENTRA [Suspect]
     Active Substance: HUMAN IMMUNOGLOBULIN G
     Indication: Immunodeficiency common variable
     Dosage: 8 G, QW
     Route: 058
     Dates: start: 202501
  2. UNSPECIFIED INGREDIENT [Concomitant]
     Active Substance: UNSPECIFIED INGREDIENT

REACTIONS (6)
  - Appendicitis [Unknown]
  - Nephrolithiasis [Unknown]
  - Abdominal pain [Unknown]
  - Lymphadenopathy [Unknown]
  - Infection [Unknown]
  - Weight increased [Unknown]

NARRATIVE: CASE EVENT DATE: 20250309
